FAERS Safety Report 10775991 (Version 1)
Quarter: 2015Q1

REPORT INFORMATION
  Report Type: Spontaneous
  Country: RO (occurrence: RO)
  Receive Date: 20150209
  Receipt Date: 20150209
  Transmission Date: 20150721
  Serious: Yes (Hospitalization)
  Sender: FDA-Public Use
  Company Number: RO-BAYER-2015-015386

PATIENT
  Age: 40 Year
  Sex: Female

DRUGS (1)
  1. JAYDESS [Suspect]
     Active Substance: LEVONORGESTREL
     Indication: CONTRACEPTION
     Dosage: 14 MCG/24HR, CONT
     Route: 015
     Dates: start: 2014, end: 20150112

REACTIONS (3)
  - Uterine leiomyoma [Unknown]
  - Menorrhagia [Unknown]
  - Device expulsion [Unknown]

NARRATIVE: CASE EVENT DATE: 20141231
